FAERS Safety Report 5113798-4 (Version None)
Quarter: 2006Q3

REPORT INFORMATION
  Report Type: 
  Country: None (occurrence: None)
  Receive Date: 20060921
  Receipt Date: 20060921
  Transmission Date: 20061208
  Serious: Yes (Other)
  Sender: FDA-Public Use
  Company Number: None

PATIENT
  Age: 77 Year
  Sex: Female
  Weight: 56.6996 kg

DRUGS (1)
  1. CIPRO [Suspect]
     Indication: PREOPERATIVE CARE
     Dosage: 400 MG IV
     Route: 042

REACTIONS (2)
  - BURNING SENSATION [None]
  - PRURITUS [None]
